FAERS Safety Report 10019170 (Version 1)
Quarter: 2014Q1

REPORT INFORMATION
  Report Type: Spontaneous
  Country: US (occurrence: None)
  Receive Date: 20140314
  Receipt Date: 20140314
  Transmission Date: 20141002
  Serious: Yes (Other)
  Sender: FDA-Public Use
  Company Number: None

PATIENT
  Age: 21 Year
  Sex: Male

DRUGS (1)
  1. DIVALPROEX SODIUM 500MG [Suspect]
     Indication: MENTAL DISORDER
     Dosage: DIVALPROEX SODIUM  BID  ORAL
     Route: 048

REACTIONS (1)
  - Drug level above therapeutic [None]
